FAERS Safety Report 19738294 (Version 1)
Quarter: 2021Q3

REPORT INFORMATION
  Report Type: Spontaneous
  Country: US (occurrence: US)
  Receive Date: 20210820
  Receipt Date: 20210820
  Transmission Date: 20211014
  Serious: No
  Sender: FDA-Public Use
  Company Number: None

PATIENT
  Age: 61 Year
  Sex: Male
  Weight: 121.05 kg

DRUGS (13)
  1. GLIPIZIDE ER [Concomitant]
     Active Substance: GLIPIZIDE
  2. GEMFIBROZIL. [Concomitant]
     Active Substance: GEMFIBROZIL
  3. DICLOFENAC SODIUM TOPICAL GEL 1% 100 G TUBE [Suspect]
     Active Substance: DICLOFENAC SODIUM
     Indication: CARPAL TUNNEL SYNDROME
     Dosage: ?          QUANTITY:100 GRAM;?
     Route: 061
     Dates: start: 20210709, end: 20210819
  4. ASPIRIN. [Concomitant]
     Active Substance: ASPIRIN
  5. LATANOPROST. [Concomitant]
     Active Substance: LATANOPROST
  6. FUROSEMIDE. [Concomitant]
     Active Substance: FUROSEMIDE
  7. CARVEDILOL. [Concomitant]
     Active Substance: CARVEDILOL
  8. NORVASC [Concomitant]
     Active Substance: AMLODIPINE BESYLATE
  9. METFORMIN [Concomitant]
     Active Substance: METFORMIN HYDROCHLORIDE
  10. LOSARTAN POTASSIUM. [Concomitant]
     Active Substance: LOSARTAN POTASSIUM
  11. CRESTOR [Concomitant]
     Active Substance: ROSUVASTATIN CALCIUM
  12. JANUVIA [Concomitant]
     Active Substance: SITAGLIPTIN PHOSPHATE
  13. HYDRALAZINE [Concomitant]
     Active Substance: HYDRALAZINE HYDROCHLORIDE

REACTIONS (3)
  - Application site rash [None]
  - Application site erosion [None]
  - Application site pruritus [None]

NARRATIVE: CASE EVENT DATE: 20210815
